FAERS Safety Report 12080236 (Version 1)
Quarter: 2016Q1

REPORT INFORMATION
  Report Type: Spontaneous
  Country: US (occurrence: None)
  Receive Date: 20160212
  Receipt Date: 20160212
  Transmission Date: 20160526
  Serious: Yes (Life-Threatening, Hospitalization)
  Sender: FDA-Public Use
  Company Number: None

PATIENT
  Age: 27 Year
  Sex: Female
  Weight: 86.18 kg

DRUGS (1)
  1. NUVARING [Suspect]
     Active Substance: ETHINYL ESTRADIOL\ETONOGESTREL
     Indication: CONTRACEPTION
     Dosage: 1 DEVICE CONTINUOUS VAGINAL
     Route: 067

REACTIONS (3)
  - Carotid artery occlusion [None]
  - Cerebral infarction [None]
  - Cerebrovascular accident [None]

NARRATIVE: CASE EVENT DATE: 20160105
